FAERS Safety Report 7322472-5 (Version None)
Quarter: 2011Q1

REPORT INFORMATION
  Report Type: 
  Country: None (occurrence: None)
  Receive Date: 20110301
  Receipt Date: 20110223
  Transmission Date: 20110831
  Serious: Yes (Hospitalization, Other)
  Sender: FDA-Public Use
  Company Number: US-ASTRAZENECA-2007UW02100

PATIENT
  Age: 445 Month
  Sex: Female
  Weight: 130.2 kg

DRUGS (10)
  1. SEROQUEL [Suspect]
     Route: 048
     Dates: start: 20010101, end: 20060601
  2. SEROQUEL [Suspect]
     Dosage: 100 - 300 MG
     Route: 048
     Dates: start: 20011016, end: 20061009
  3. DEPAKOTE [Concomitant]
     Route: 048
     Dates: start: 20011016
  4. TIABABINE [Concomitant]
     Dates: start: 20060212
  5. LISINOPRIL [Concomitant]
     Dates: start: 20060201
  6. CELEXA [Concomitant]
     Dosage: 20 - 40 MG
     Route: 048
     Dates: start: 20011016
  7. TESSALON [Concomitant]
  8. SINGULAIR [Concomitant]
     Dates: start: 20060201
  9. PREDNISONE [Concomitant]
     Dosage: TAPER 40 FOR THREE, 30 FOR THREE, 20 FOR TWO AND 10 FOR TWO
     Dates: start: 20060212
  10. SEROQUEL [Suspect]
     Route: 048
     Dates: start: 20060212

REACTIONS (5)
  - ASTHMA [None]
  - TYPE 2 DIABETES MELLITUS [None]
  - DIABETIC NEUROPATHY [None]
  - DIABETES MELLITUS INADEQUATE CONTROL [None]
  - DYSPNOEA [None]
